FAERS Safety Report 8483331-8 (Version None)
Quarter: 2012Q3

REPORT INFORMATION
  Report Type: 
  Country: None (occurrence: None)
  Receive Date: 20120702
  Receipt Date: 20120628
  Transmission Date: 20120928
  Serious: No
  Sender: FDA-Public Use
  Company Number: US-PFIZER INC-2012156186

PATIENT
  Sex: Female
  Weight: 68.027 kg

DRUGS (2)
  1. GEODON [Suspect]
     Dosage: 80 MG, 2X/DAY
     Route: 048
     Dates: start: 20120501
  2. GEODON [Suspect]
     Indication: BIPOLAR DISORDER
     Dosage: 40 MG, 2X/DAY
     Route: 048
     Dates: start: 20120401, end: 20120501

REACTIONS (1)
  - DYSKINESIA [None]
